FAERS Safety Report 5052398-1 (Version None)
Quarter: 2006Q3

REPORT INFORMATION
  Report Type: 
  Country: None (occurrence: None)
  Receive Date: 20060717
  Receipt Date: 20060710
  Transmission Date: 20061208
  Serious: Yes (Hospitalization)
  Sender: FDA-Public Use
  Company Number: FR-SP-2006-01730

PATIENT
  Age: 65 Year
  Sex: Female

DRUGS (2)
  1. IMMUCYST [Suspect]
     Indication: BLADDER CANCER
     Dosage: 6 WEEKS OF TREATMENT
     Route: 043
     Dates: start: 20000901
  2. CORTICOID THERAPY [Concomitant]

REACTIONS (1)
  - POLYARTHRITIS [None]
